FAERS Safety Report 12575719 (Version 9)
Quarter: 2018Q3

REPORT INFORMATION
  Report Type: Report from Study
  Country: US (occurrence: US)
  Receive Date: 20160720
  Receipt Date: 20180718
  Transmission Date: 20181010
  Serious: Yes (Hospitalization, Other)
  Sender: FDA-Public Use
  Company Number: US-ACTELION-A-US2016-135138

PATIENT
  Age: 57 Year
  Sex: Female

DRUGS (10)
  1. TRACLEER [Suspect]
     Active Substance: BOSENTAN
     Indication: PULMONARY HYPERTENSION
     Dosage: 125 MG, BID
     Route: 048
     Dates: start: 20121024
  2. COUMADIN [Suspect]
     Active Substance: WARFARIN SODIUM
     Indication: PRODUCT USED FOR UNKNOWN INDICATION
     Route: 065
  3. CELLCEPT [Suspect]
     Active Substance: MYCOPHENOLATE MOFETIL\MYCOPHENOLATE MOFETIL HYDROCHLORIDE
     Indication: PRODUCT USED FOR UNKNOWN INDICATION
     Route: 065
  4. AMIODARONE [Concomitant]
     Active Substance: AMIODARONE
  5. IRON [Concomitant]
     Active Substance: IRON
  6. METOPROLOL. [Concomitant]
     Active Substance: METOPROLOL
  7. LOSARTAN. [Concomitant]
     Active Substance: LOSARTAN
  8. METFORMIN [Concomitant]
     Active Substance: METFORMIN HYDROCHLORIDE
  9. SYNTHROID [Concomitant]
     Active Substance: LEVOTHYROXINE SODIUM
  10. FOLIC ACID. [Concomitant]
     Active Substance: FOLIC ACID

REACTIONS (17)
  - Systemic lupus erythematosus [Not Recovered/Not Resolved]
  - Blood count abnormal [Recovering/Resolving]
  - International normalised ratio increased [Unknown]
  - Tachycardia [Unknown]
  - Dyspnoea [Recovering/Resolving]
  - Red blood cell count decreased [Unknown]
  - Fibromyalgia [Not Recovered/Not Resolved]
  - Upper respiratory tract infection [Not Recovered/Not Resolved]
  - Haemolytic anaemia [Not Recovered/Not Resolved]
  - Body temperature increased [Unknown]
  - Palpitations [Recovered/Resolved]
  - Heart valve replacement [Unknown]
  - Pneumonia [Recovering/Resolving]
  - White blood cell count decreased [Unknown]
  - Anaemia [Recovering/Resolving]
  - Chest pain [Recovering/Resolving]
  - Haemoptysis [Recovered/Resolved]

NARRATIVE: CASE EVENT DATE: 20160523
